FAERS Safety Report 22032930 (Version 1)
Quarter: 2023Q1

REPORT INFORMATION
  Report Type: Other
  Country: KZ (occurrence: KZ)
  Receive Date: 20230224
  Receipt Date: 20230224
  Transmission Date: 20230417
  Serious: Yes (Other)
  Sender: FDA-Public Use
  Company Number: KZ-MACLEODS PHARMA EU LTD-MAC2023039906

PATIENT

DRUGS (6)
  1. PYRAZINAMIDE [Suspect]
     Active Substance: PYRAZINAMIDE
     Indication: Pulmonary tuberculosis
     Dosage: 500 MILLIGRAM
     Route: 065
  2. LIVOSIN [Concomitant]
     Indication: Product used for unknown indication
     Dosage: 750 MILLIGRAM (RK-LS-5 NO. 014993, NOBEL ALMATY PHARMACEUTICAL FACTORY)
     Route: 065
  3. LIVOSIN [Concomitant]
     Dosage: 250 MILLIGRAM (RK-LS-5 NO. 014991, NOBEL ALMATY PHARMACEUTICAL FACTORY)
     Route: 065
  4. BEDAQUILINE [Concomitant]
     Active Substance: BEDAQUILINE
     Indication: Product used for unknown indication
     Dosage: UNK
     Route: 065
  5. LINEZOLID [Concomitant]
     Active Substance: LINEZOLID
     Indication: Product used for unknown indication
     Dosage: UNK (RK-LS-5 NO. 024815, NUR-MAY PHARMACY)
     Route: 065
  6. CYCLOSERINE [Concomitant]
     Active Substance: CYCLOSERINE
     Indication: Product used for unknown indication
     Dosage: UNK (RK-LS-5 NO. 005359, ABDI IBRAHIM GLOBAL PHARM; KAZAKHSTAN)
     Route: 065

REACTIONS (1)
  - Hepatotoxicity [Not Recovered/Not Resolved]
